FAERS Safety Report 4541922-0 (Version None)
Quarter: 2004Q4

REPORT INFORMATION
  Report Type: 
  Country: None (occurrence: None)
  Receive Date: 20041230
  Receipt Date: 20041209
  Transmission Date: 20050328
  Serious: Yes (Other)
  Sender: FDA-Public Use
  Company Number: PHEH2004US13211

PATIENT
  Age: 63 Year
  Sex: Female

DRUGS (1)
  1. ELIDEL [Suspect]
     Indication: RASH
     Dosage: 1 %, PRN
     Route: 061
     Dates: start: 20010101, end: 20041001

REACTIONS (1)
  - HEPATOCELLULAR DAMAGE [None]
